FAERS Safety Report 8449734-2 (Version None)
Quarter: 2012Q2

REPORT INFORMATION
  Report Type: 
  Country: None (occurrence: None)
  Receive Date: 20120620
  Receipt Date: 20120614
  Transmission Date: 20120825
  Serious: No
  Sender: FDA-Public Use
  Company Number: US-PFIZER INC-2012144159

PATIENT
  Sex: Male
  Weight: 100 kg

DRUGS (3)
  1. PHENTERMINE [Concomitant]
     Dosage: 37.5 MG, 1X/DAY
  2. AMBIEN [Concomitant]
     Dosage: 10 MG, 1X/DAY
  3. DEPO-TESTOSTERONE [Suspect]
     Indication: ANDROGEN DEFICIENCY
     Dosage: UNK, ONCE IN EVERY TWO WEEKS
     Route: 030
     Dates: start: 20111121

REACTIONS (1)
  - RASH [None]
